FAERS Safety Report 5141603-9 (Version None)
Quarter: 2006Q4

REPORT INFORMATION
  Report Type: 
  Country: None (occurrence: None)
  Receive Date: 20061101
  Receipt Date: 20061020
  Transmission Date: 20070319
  Serious: Yes (Hospitalization, Other)
  Sender: FDA-Public Use
  Company Number: IL-PURDUE-USA_2006_0025471

PATIENT
  Age: 55 Year
  Sex: Female

DRUGS (2)
  1. OXYCODONE HCL [Suspect]
     Indication: PAIN MANAGEMENT
     Dosage: 10 MG, BID
  2. OXYCODONE/ACETAMINOPHEN [Suspect]
     Indication: PAIN MANAGEMENT
     Dosage: UNK, QID

REACTIONS (8)
  - CEREBRAL ATROPHY [None]
  - CONFUSIONAL STATE [None]
  - CRANIAL NERVE PALSIES MULTIPLE [None]
  - DEPRESSED LEVEL OF CONSCIOUSNESS [None]
  - HYPOREFLEXIA [None]
  - OVERDOSE [None]
  - PSEUDOBULBAR PALSY [None]
  - STATUS EPILEPTICUS [None]
